FAERS Safety Report 14961029 (Version 2)
Quarter: 2018Q2

REPORT INFORMATION
  Report Type: Spontaneous
  Country: CH (occurrence: CH)
  Receive Date: 20180531
  Receipt Date: 20180607
  Transmission Date: 20180711
  Serious: Yes (Hospitalization, Other)
  Sender: FDA-Public Use
  Company Number: CH-ASTRAZENECA-2018SE68831

PATIENT
  Age: 1061 Month
  Sex: Female

DRUGS (21)
  1. ATARAX [Concomitant]
     Active Substance: HYDROXYZINE HYDROCHLORIDE
     Dates: end: 20180419
  2. OMEPRAZOLE. [Interacting]
     Active Substance: OMEPRAZOLE
     Route: 048
     Dates: end: 20180416
  3. CLOPIDOGREL [Concomitant]
     Active Substance: CLOPIDOGREL BISULFATE
  4. MORPHINE [Concomitant]
     Active Substance: MORPHINE
  5. CIPRALEX [Interacting]
     Active Substance: ESCITALOPRAM OXALATE
     Route: 048
     Dates: start: 201710
  6. ANEXATE [Concomitant]
     Active Substance: FLUMAZENIL
     Dosage: 0.5MG
     Dates: start: 20180419, end: 20180419
  7. CALCIMAGON D3 [Concomitant]
     Active Substance: CALCIUM\CHOLECALCIFEROL
  8. QUETIAPINE. [Concomitant]
     Active Substance: QUETIAPINE
  9. TEMESTA EXPIDET [Suspect]
     Active Substance: LORAZEPAM
     Indication: ANXIETY
     Dosage: 0.5MG UNKNOWN
     Route: 048
     Dates: start: 20180418, end: 20180418
  10. DUROGESIC [Interacting]
     Active Substance: FENTANYL
     Route: 003
  11. MOVICOL [Concomitant]
     Active Substance: POLYETHYLENE GLYCOL 3350\POTASSIUM CHLORIDE\SODIUM BICARBONATE\SODIUM CHLORIDE
  12. BELOC ZOK [Concomitant]
     Active Substance: METOPROLOL SUCCINATE
     Dates: start: 20180416
  13. DUROGESIC [Interacting]
     Active Substance: FENTANYL
     Dosage: 50.0UG UNKNOWN
     Route: 003
     Dates: start: 20180419
  14. PARACETAMOL [Concomitant]
     Active Substance: ACETAMINOPHEN
  15. PREDNISONE. [Concomitant]
     Active Substance: PREDNISONE
  16. MORPHINE HYDROCHLORIDE [Concomitant]
     Active Substance: MORPHINE HYDROCHLORIDE
     Dates: end: 20180419
  17. FLECTOR [Concomitant]
     Active Substance: DICLOFENAC EPOLAMINE
  18. NEXIUM [Suspect]
     Active Substance: ESOMEPRAZOLE MAGNESIUM
     Route: 048
     Dates: start: 20180416
  19. QUETIAPINE. [Concomitant]
     Active Substance: QUETIAPINE
  20. CLEXANE [Concomitant]
     Active Substance: ENOXAPARIN SODIUM
     Dates: end: 20180424
  21. LAXOBERON [Concomitant]
     Active Substance: SODIUM PICOSULFATE
     Dates: start: 20180419

REACTIONS (5)
  - Anxiety [Not Recovered/Not Resolved]
  - Bradypnoea [Recovered/Resolved]
  - Toxicity to various agents [Recovered/Resolved]
  - Drug interaction [Not Recovered/Not Resolved]
  - Altered state of consciousness [Recovered/Resolved]

NARRATIVE: CASE EVENT DATE: 201802
